FAERS Safety Report 7826591-6 (Version None)
Quarter: 2011Q4

REPORT INFORMATION
  Report Type: 
  Country: None (occurrence: None)
  Receive Date: 20111020
  Receipt Date: 20110930
  Transmission Date: 20120403
  Serious: No
  Sender: FDA-Public Use
  Company Number: US-MYLANLABS-2011S1020773

PATIENT
  Age: 79 Year
  Sex: Male

DRUGS (4)
  1. ZOCOR [Concomitant]
  2. METOPROLOL TARTRATE [Concomitant]
  3. TAMSULOSIN HCL [Suspect]
     Indication: PROSTATE INFECTION
     Route: 048
     Dates: start: 20110928
  4. MICARDIS HCT [Concomitant]

REACTIONS (3)
  - HYPOTENSION [None]
  - PYREXIA [None]
  - ASTHENIA [None]
